FAERS Safety Report 7488884-4 (Version None)
Quarter: 2011Q2

REPORT INFORMATION
  Report Type: 
  Country: None (occurrence: None)
  Receive Date: 20110518
  Receipt Date: 20110316
  Transmission Date: 20111010
  Serious: Yes (Other)
  Sender: FDA-Public Use
  Company Number: PHHY2011US26413

PATIENT
  Sex: Female

DRUGS (3)
  1. NUCYNTA [Concomitant]
     Dosage: UNK
  2. ZANAFLEX [Suspect]
     Indication: MUSCLE SPASMS
     Dosage: 4 MG, BID
     Route: 048
  3. TIZANIDINE HCL [Suspect]
     Dosage: UNK

REACTIONS (9)
  - FALL [None]
  - CYSTITIS [None]
  - MUSCLE TIGHTNESS [None]
  - OVARIAN CYST [None]
  - BACK PAIN [None]
  - PAIN IN EXTREMITY [None]
  - HYPOAESTHESIA [None]
  - BONE PAIN [None]
  - MUSCLE SPASMS [None]
